FAERS Safety Report 5463431-7 (Version None)
Quarter: 2007Q3

REPORT INFORMATION
  Report Type: 
  Country: None (occurrence: None)
  Receive Date: 20070920
  Receipt Date: 20070910
  Transmission Date: 20080115
  Serious: Yes (Other)
  Sender: FDA-Public Use
  Company Number: US-PFIZER INC-2006099995

PATIENT
  Sex: Female
  Weight: 59.4 kg

DRUGS (7)
  1. LYRICA [Suspect]
     Indication: NERVE INJURY
     Dates: start: 20060801, end: 20070905
  2. LYRICA [Suspect]
     Indication: NEURALGIA
  3. ELAVIL [Concomitant]
     Dates: start: 20060701, end: 20060701
  4. TRAMADOL HYDROCHLORIDE AND ACETAMINOPHEN [Concomitant]
  5. TYLENOL (CAPLET) [Concomitant]
  6. TRAMADOL HCL [Concomitant]
  7. VITAMINS [Concomitant]

REACTIONS (14)
  - CONFUSIONAL STATE [None]
  - DIARRHOEA [None]
  - DISTURBANCE IN ATTENTION [None]
  - EUPHORIC MOOD [None]
  - FALL [None]
  - FATIGUE [None]
  - FEELING OF BODY TEMPERATURE CHANGE [None]
  - GAIT DISTURBANCE [None]
  - HEADACHE [None]
  - INSOMNIA [None]
  - MIDDLE INSOMNIA [None]
  - MUSCLE TWITCHING [None]
  - OEDEMA PERIPHERAL [None]
  - PALPITATIONS [None]
